FAERS Safety Report 4865037-7 (Version None)
Quarter: 2005Q4

REPORT INFORMATION
  Report Type: 
  Country: None (occurrence: None)
  Receive Date: 20051219
  Receipt Date: 20051205
  Transmission Date: 20060501
  Serious: Yes (Hospitalization)
  Sender: FDA-Public Use
  Company Number: 2005EU002677

PATIENT
  Age: 47 Year
  Sex: Male

DRUGS (6)
  1. FK506 (TACROLIMUS CAPSULES) [Suspect]
     Indication: LIVER TRANSPLANT
     Dosage: 6 MG, BID, ORAL
     Route: 048
     Dates: start: 20040928, end: 20050919
  2. MYCOPHENOLATE MOFETIL (MYCOPHENOLATE MOFETIL) [Suspect]
     Indication: LIVER TRANSPLANT
     Dosage: 1000 MG, BID, IV NOS
     Route: 042
     Dates: start: 20040927, end: 20041002
  3. MYCOPHENOLATE MOFETIL (MYCOPHENOLATE MOFETIL) [Suspect]
     Indication: LIVER TRANSPLANT
     Dosage: 1000 MG, BID, IV NOS
     Route: 042
     Dates: start: 20041003, end: 20050919
  4. HYDROCORTISONE [Suspect]
     Indication: LIVER TRANSPLANT
     Dosage: 100 MG, BID
     Dates: start: 20040927, end: 20040929
  5. PREDNISOLONE (PREDNISOLONE) [Suspect]
     Indication: LIVER TRANSPLANT
     Dosage: 5 MG, UID/QD
     Dates: start: 20040929, end: 20041220
  6. FENTANYL [Concomitant]

REACTIONS (1)
  - NEPHROLITHIASIS [None]
